FAERS Safety Report 6807942-8 (Version None)
Quarter: 2010Q2

REPORT INFORMATION
  Report Type: 
  Country: None (occurrence: None)
  Receive Date: 20100629
  Receipt Date: 20090323
  Transmission Date: 20101027
  Serious: No
  Sender: FDA-Public Use
  Company Number: US-PFIZER INC-2009188312

PATIENT
  Sex: Male

DRUGS (5)
  1. XANAX [Suspect]
  2. CHANTIX [Suspect]
  3. EFFEXOR [Suspect]
  4. TRAZODONE [Suspect]
  5. ABILIFY [Suspect]

REACTIONS (3)
  - AGITATION [None]
  - COLD SWEAT [None]
  - NERVOUSNESS [None]
